FAERS Safety Report 24334970 (Version 1)
Quarter: 2024Q3

REPORT INFORMATION
  Report Type: Spontaneous
  Country: JP (occurrence: JP)
  Receive Date: 20240918
  Receipt Date: 20240918
  Transmission Date: 20241017
  Serious: Yes (Hospitalization)
  Sender: EISAI
  Company Number: JP-Eisai-202111593_LEN-EC_P_1

PATIENT
  Age: 83 Year
  Sex: Female

DRUGS (10)
  1. LENVIMA [Suspect]
     Active Substance: LENVATINIB
     Indication: Endometrial cancer
     Route: 048
     Dates: start: 20220119, end: 202201
  2. LENVIMA [Suspect]
     Active Substance: LENVATINIB
     Route: 048
     Dates: start: 202201, end: 2022
  3. LENVIMA [Suspect]
     Active Substance: LENVATINIB
     Route: 048
     Dates: start: 2022, end: 2022
  4. LENVIMA [Suspect]
     Active Substance: LENVATINIB
     Dosage: DOSE AND FREQUENCY UNKNOWN.
     Route: 048
     Dates: start: 2022
  5. LENVIMA [Suspect]
     Active Substance: LENVATINIB
     Route: 048
  6. KEYTRUDA [Suspect]
     Active Substance: PEMBROLIZUMAB
     Indication: Endometrial cancer
     Route: 042
     Dates: start: 20220119, end: 20220119
  7. KEYTRUDA [Suspect]
     Active Substance: PEMBROLIZUMAB
     Route: 042
     Dates: start: 20220401
  8. ELIQUIS [Concomitant]
     Active Substance: APIXABAN
     Indication: Product used for unknown indication
     Dosage: DOSE AND FREQUENCY UNKNOWN
     Route: 065
  9. ADALAT CC [Concomitant]
     Active Substance: NIFEDIPINE
     Indication: Product used for unknown indication
     Dosage: DOSE AND FREQUENCY UNKNOWN.
     Route: 065
  10. DIART [Concomitant]
     Indication: Product used for unknown indication
     Dosage: DOSE AND FREQUENCY UNKNOWN.
     Route: 065

REACTIONS (14)
  - Type 1 diabetes mellitus [Unknown]
  - Immune-mediated enterocolitis [Recovering/Resolving]
  - Hypertension [Recovered/Resolved]
  - Renal impairment [Unknown]
  - Polymyalgia rheumatica [Recovered/Resolved]
  - Weight decreased [Recovered/Resolved]
  - Dehydration [Not Recovered/Not Resolved]
  - Malaise [Unknown]
  - Decreased appetite [Recovered/Resolved]
  - Hypoaesthesia [Unknown]
  - Palmar-plantar erythrodysaesthesia syndrome [Unknown]
  - Hand-foot-and-mouth disease [Unknown]
  - Diarrhoea [Unknown]
  - Abdominal pain [Unknown]

NARRATIVE: CASE EVENT DATE: 20220101
